FAERS Safety Report 7939416-5 (Version None)
Quarter: 2011Q4

REPORT INFORMATION
  Report Type: 
  Country: None (occurrence: None)
  Receive Date: 20111125
  Receipt Date: 20111115
  Transmission Date: 20120403
  Serious: Yes (Death, Life-Threatening, Hospitalization, Other)
  Sender: FDA-Public Use
  Company Number: GB-ROCHE-GNE322628

PATIENT
  Sex: Female

DRUGS (7)
  1. BUSPIRONE HYDROCHLORIDE [Concomitant]
  2. LUCENTIS [Suspect]
     Indication: PRODUCT USED FOR UNKNOWN INDICATION
     Dosage: DOSE AND FREQUENCY: NOT REPORTED
     Route: 050
  3. OMEPRAZOLE [Concomitant]
     Dates: start: 20110520
  4. ACETAMINOPHEN [Concomitant]
     Dates: start: 20110531
  5. CO-AMILOFRUSE [Concomitant]
  6. CODEINE PHOSPHATE [Concomitant]
  7. LEVOTHYROXINE SODIUM [Concomitant]
     Dates: start: 20110520

REACTIONS (5)
  - FALL [None]
  - HAEMATOMA [None]
  - PULSELESS ELECTRICAL ACTIVITY [None]
  - INTERNATIONAL NORMALISED RATIO INCREASED [None]
  - LOWER RESPIRATORY TRACT INFECTION [None]
